FAERS Safety Report 16193727 (Version 1)
Quarter: 2019Q2

REPORT INFORMATION
  Report Type: Spontaneous
  Country: US (occurrence: US)
  Receive Date: 20190413
  Receipt Date: 20190413
  Transmission Date: 20190711
  Serious: Yes (Hospitalization)
  Sender: FDA-Public Use
  Company Number: US-JNJFOC-20190403001

PATIENT
  Age: 38 Year
  Sex: Male
  Weight: 90.27 kg

DRUGS (1)
  1. ACETAMINOPHEN REGULAR STRENGTH [Suspect]
     Active Substance: ACETAMINOPHEN
     Indication: PRODUCT USED FOR UNKNOWN INDICATION
     Dosage: PAST 2-3 DAYS
     Route: 048
     Dates: start: 201903

REACTIONS (4)
  - Hepatomegaly [Recovering/Resolving]
  - Intentional product misuse [Unknown]
  - Acute hepatic failure [Recovering/Resolving]
  - Hepatitis acute [Recovering/Resolving]

NARRATIVE: CASE EVENT DATE: 201903
